FAERS Safety Report 14624617 (Version 1)
Quarter: 2018Q1

REPORT INFORMATION
  Report Type: Spontaneous
  Country: US (occurrence: US)
  Receive Date: 20180311
  Receipt Date: 20180311
  Transmission Date: 20180509
  Serious: Yes (Other)
  Sender: FDA-Public Use
  Company Number: None

PATIENT
  Age: 76 Year
  Sex: Female
  Weight: 74.25 kg

DRUGS (19)
  1. CYMBALTA [Concomitant]
     Active Substance: DULOXETINE HYDROCHLORIDE
  2. ZINC. [Concomitant]
     Active Substance: ZINC
  3. KERATIN [Concomitant]
     Active Substance: KERATIN
  4. VITAMIN C [Concomitant]
     Active Substance: ASCORBIC ACID
  5. RIBOSE [Concomitant]
     Active Substance: DIETARY SUPPLEMENT
  6. EQUATE HAIR REGROWTH TREATMENT FOR WOMEN [Suspect]
     Active Substance: MINOXIDIL
     Indication: ALOPECIA
     Dosage: ?          QUANTITY:1 ML;?
     Route: 061
     Dates: start: 20150101, end: 20180310
  7. VITAMIN D3 [Concomitant]
     Active Substance: CHOLECALCIFEROL
  8. CALCIUM [Concomitant]
     Active Substance: CALCIUM
  9. MAGNESIUM WITH MALIC ACID [Concomitant]
  10. GENERIC ALLEGRA [Concomitant]
  11. ARMOUR THYROID [Concomitant]
     Active Substance: THYROID, PORCINE
  12. OSTEO-BIFLEX WITH TURMERIC [Concomitant]
  13. ONE A DAY FOR SENIORS [Concomitant]
  14. ALEDONTRATE [Concomitant]
  15. BIOTIN [Concomitant]
     Active Substance: BIOTIN
  16. PROZAC [Concomitant]
     Active Substance: FLUOXETINE HYDROCHLORIDE
  17. NORDITROPIN [Concomitant]
     Active Substance: SOMATROPIN
  18. VITAMIN B COMPLEX [Concomitant]
     Active Substance: CYANOCOBALAMIN\DEXPANTHENOL\NIACINAMIDE\PYRIDOXINE HYDROCHLORIDE\RIBOFLAVIN 5^-PHOSPHATE SODIUM\THIAMINE HYDROCHLORIDE\VITAMIN B COMPLEX
  19. FLONASE [Suspect]
     Active Substance: FLUTICASONE PROPIONATE

REACTIONS (3)
  - Therapy cessation [None]
  - Skin ulcer [None]
  - Application site reaction [None]

NARRATIVE: CASE EVENT DATE: 20180210
